FAERS Safety Report 8054127-6 (Version None)
Quarter: 2012Q1

REPORT INFORMATION
  Report Type: 
  Country: None (occurrence: None)
  Receive Date: 20120118
  Receipt Date: 20120109
  Transmission Date: 20120608
  Serious: Yes (Hospitalization)
  Sender: FDA-Public Use
  Company Number: JP-ASTRAZENECA-2012SE02757

PATIENT
  Age: 89 Year
  Sex: Female

DRUGS (6)
  1. CANDESARTAN CILEXETIL AND HYDROCHLOROTHIAZIDE [Suspect]
     Indication: HYPERTENSION
     Route: 048
     Dates: end: 20111218
  2. ACETAMINOPHEN [Concomitant]
     Indication: PRODUCT USED FOR UNKNOWN INDICATION
     Route: 048
     Dates: start: 20111213
  3. AMOXICILLIN [Concomitant]
     Indication: BRONCHITIS
     Route: 048
  4. FENOFIBRATE [Concomitant]
     Indication: PRODUCT USED FOR UNKNOWN INDICATION
     Route: 048
  5. NICARDIPINE HCL [Suspect]
     Indication: HYPERTENSION
     Route: 065
  6. BISOPROLOL FUMARATE [Suspect]
     Indication: HYPERTENSION
     Route: 048
     Dates: end: 20111218

REACTIONS (2)
  - ORTHOSTATIC HYPOTENSION [None]
  - FALL [None]
